FAERS Safety Report 6099804-1 (Version None)
Quarter: 2009Q1

REPORT INFORMATION
  Report Type: 
  Country: None (occurrence: None)
  Receive Date: 20090303
  Receipt Date: 20090219
  Transmission Date: 20090719
  Serious: Yes (Other)
  Sender: FDA-Public Use
  Company Number: PHHY2009BR06043

PATIENT
  Sex: Male
  Weight: 81 kg

DRUGS (2)
  1. VOLTAREN [Suspect]
     Indication: BONE PAIN
     Dosage: 1 TAB
     Dates: start: 20090217
  2. VASOGARD [Concomitant]
     Dosage: 1 TAB/DAY

REACTIONS (5)
  - AORTIC OCCLUSION [None]
  - BONE PAIN [None]
  - FATIGUE [None]
  - NEPHROLITHIASIS [None]
  - PAIN IN EXTREMITY [None]
